FAERS Safety Report 25680786 (Version 1)
Quarter: 2025Q3

REPORT INFORMATION
  Report Type: Spontaneous
  Country: US (occurrence: None)
  Receive Date: 20250813
  Receipt Date: 20250813
  Transmission Date: 20251020
  Serious: No
  Sender: FDA-CTU
  Company Number: None

PATIENT
  Age: 48 Year

DRUGS (1)
  1. DUPIXENT [Suspect]
     Active Substance: DUPILUMAB
     Indication: Asthma
     Route: 058
     Dates: start: 20250606

REACTIONS (5)
  - Dry eye [None]
  - Eye pruritus [None]
  - Erythema [None]
  - Burning sensation [None]
  - Dry skin [None]

NARRATIVE: CASE EVENT DATE: 20250810
